FAERS Safety Report 13496972 (Version 1)
Quarter: 2017Q2

REPORT INFORMATION
  Report Type: Spontaneous
  Country: PT (occurrence: PT)
  Receive Date: 20170428
  Receipt Date: 20170428
  Transmission Date: 20170830
  Serious: Yes (Hospitalization)
  Sender: FDA-Public Use
  Company Number: PT-SA-2017SA074399

PATIENT
  Sex: Male

DRUGS (2)
  1. BCG FOR IMMUNOTHERAPY [Suspect]
     Active Substance: BACILLUS CALMETTE-GUERIN ANTIGEN, UNSPECIFIED SUBSTRAIN
     Indication: BLADDER CANCER
     Route: 043
     Dates: start: 201312, end: 201312
  2. BCG FOR IMMUNOTHERAPY [Suspect]
     Active Substance: BACILLUS CALMETTE-GUERIN ANTIGEN, UNSPECIFIED SUBSTRAIN
     Indication: BLADDER CANCER
     Route: 043

REACTIONS (10)
  - Lung infiltration [Recovering/Resolving]
  - Respiratory failure [Recovered/Resolved]
  - Dyspnoea [Recovering/Resolving]
  - Lymphadenopathy mediastinal [Recovering/Resolving]
  - Disseminated Bacillus Calmette-Guerin infection [Recovering/Resolving]
  - Respiratory tract infection [Recovering/Resolving]
  - Hepatic steatosis [Recovering/Resolving]
  - Productive cough [Recovering/Resolving]
  - Hilar lymphadenopathy [Recovering/Resolving]
  - Hepatic enzyme increased [Recovered/Resolved]
